FAERS Safety Report 8270800-9 (Version None)
Quarter: 2012Q2

REPORT INFORMATION
  Report Type: 
  Country: None (occurrence: None)
  Receive Date: 20120410
  Receipt Date: 20120329
  Transmission Date: 20120825
  Serious: Yes (Other)
  Sender: FDA-Public Use
  Company Number: ES-ROCHE-1054694

PATIENT
  Age: 70 Year
  Sex: Male

DRUGS (5)
  1. FLUOROURACIL [Concomitant]
     Dates: start: 20111011
  2. IRINOTECAN HCL [Concomitant]
     Dates: start: 20111011
  3. AVASTIN [Suspect]
     Indication: COLORECTAL CANCER METASTATIC
     Route: 042
     Dates: start: 20110104, end: 20110524
  4. AVASTIN [Suspect]
     Route: 042
     Dates: start: 20111221
  5. LEUCOVORIN CALCIUM [Concomitant]
     Dates: start: 20111011

REACTIONS (2)
  - ABDOMINAL WALL CYST [None]
  - IMPAIRED HEALING [None]
